FAERS Safety Report 5767438-1 (Version None)
Quarter: 2008Q2

REPORT INFORMATION
  Report Type: 
  Country: None (occurrence: None)
  Receive Date: 20080612
  Receipt Date: 20080609
  Transmission Date: 20081010
  Serious: Yes (Hospitalization)
  Sender: FDA-Public Use
  Company Number: US-BRISTOL-MYERS SQUIBB COMPANY-14220719

PATIENT
  Age: 60 Year
  Sex: Male

DRUGS (7)
  1. ORENCIA [Suspect]
     Dosage: ALSO GIVEN ON 08-JUN-2008.
     Dates: start: 20080605
  2. ASPIRIN [Concomitant]
  3. WELLBUTRIN SR [Concomitant]
  4. CELEBREX [Concomitant]
  5. PREDNISONE TAB [Concomitant]
  6. PRILOSEC [Concomitant]
  7. MULTI-VITAMIN [Concomitant]

REACTIONS (1)
  - CHEST PAIN [None]
